FAERS Safety Report 7139514-2 (Version None)
Quarter: 2010Q4

REPORT INFORMATION
  Report Type: 
  Country: None (occurrence: None)
  Receive Date: 20101206
  Receipt Date: 20101124
  Transmission Date: 20110411
  Serious: Yes (Hospitalization)
  Sender: FDA-Public Use
  Company Number: DE-GENENTECH-310297

PATIENT
  Age: 13 Year
  Sex: Female

DRUGS (2)
  1. NUTROPIN AQ [Suspect]
     Indication: GROWTH RETARDATION
     Dosage: 1.2 MG, QD
     Route: 065
     Dates: start: 20100601, end: 20100902
  2. NUTROPIN AQ [Suspect]
     Dosage: 1.3 MG, QD
     Route: 065
     Dates: start: 20100902

REACTIONS (1)
  - OSTEONECROSIS [None]
